FAERS Safety Report 11553009 (Version 1)
Quarter: 2015Q3

REPORT INFORMATION
  Report Type: Spontaneous
  Country: US (occurrence: US)
  Receive Date: 20150925
  Receipt Date: 20150925
  Transmission Date: 20151125
  Serious: Yes (Other)
  Sender: FDA-Public Use
  Company Number: US-ACTAVIS-2015-20431

PATIENT
  Age: 71 Year
  Sex: Male

DRUGS (2)
  1. BUDESONIDE (WATSON LABORATORIES) [Suspect]
     Active Substance: BUDESONIDE
     Indication: NASAL IRRIGATION
     Dosage: 240 ML NASAL IRRIGATION WITH SALINE AND BUDESONIDE
     Route: 045
  2. SODIUM CHLORIDE (UNKNOWN) [Suspect]
     Active Substance: SODIUM CHLORIDE
     Indication: NASAL IRRIGATION
     Dosage: 240 ML NASAL IRRIGATION WITH SALINE AND BUDESONIDE
     Route: 045

REACTIONS (3)
  - Propionibacterium infection [Unknown]
  - Off label use [Unknown]
  - Streptococcal infection [Unknown]
